FAERS Safety Report 21617703 (Version 1)
Quarter: 2022Q4

REPORT INFORMATION
  Report Type: Spontaneous
  Country: FR (occurrence: FR)
  Receive Date: 20221119
  Receipt Date: 20221119
  Transmission Date: 20230113
  Serious: Yes (Hospitalization)
  Sender: FDA-Public Use
  Company Number: None

PATIENT
  Age: 68 Year
  Sex: Female

DRUGS (11)
  1. PILOCARPINE [Suspect]
     Active Substance: PILOCARPINE
     Indication: Product used for unknown indication
     Dosage: 2 DRP, QD, (1 GOUTTE MATIN ET SOIR)
     Route: 031
     Dates: start: 20210723, end: 20210726
  2. DIAMOX SEQUELS [Suspect]
     Active Substance: ACETAZOLAMIDE
     Indication: Ocular hypertension
     Dosage: 750 MG, QD, (250 MG 3 FOIS PAR JOUR)
     Route: 048
     Dates: start: 20210723, end: 20210725
  3. DIAMOX SEQUELS [Suspect]
     Active Substance: ACETAZOLAMIDE
     Dosage: 1000 MG, QD, (250 MG 4 FOIS PAR JOUR)
     Route: 048
     Dates: start: 20210726, end: 20210729
  4. LATANOPROST [Suspect]
     Active Substance: LATANOPROST
     Indication: Product used for unknown indication
     Dosage: 1 DRP, QD, (1 GOUTTE LE SOIR)
     Route: 031
     Dates: start: 20210723, end: 20210803
  5. ALPHAGAN P [Suspect]
     Active Substance: BRIMONIDINE TARTRATE
     Indication: Product used for unknown indication
     Dosage: 2 DRP, QD, (1 GOUTTE MATIN ET SOIR)
     Route: 031
     Dates: start: 20210723, end: 202107
  6. MANNITOL [Suspect]
     Active Substance: MANNITOL
     Indication: Product used for unknown indication
     Dosage: UNK
     Route: 042
     Dates: start: 20210723, end: 20210723
  7. AZITHROMYCIN [Suspect]
     Active Substance: AZITHROMYCIN
     Indication: Cataract operation
     Dosage: UNK
     Route: 031
     Dates: start: 20210722, end: 20210723
  8. DORZOLAMIDE HYDROCHLORIDE\TIMOLOL MALEATE [Suspect]
     Active Substance: DORZOLAMIDE HYDROCHLORIDE\TIMOLOL MALEATE
     Indication: Product used for unknown indication
     Dosage: 2 DRP, QD, (1 GOUTTE MATIN ET SOIR)
     Route: 031
     Dates: start: 20210723, end: 202107
  9. POTASSIUM CHLORIDE [Suspect]
     Active Substance: POTASSIUM CHLORIDE
     Indication: Product used for unknown indication
     Dosage: 1200 MG, QD, (600 MG MATIN ET SOIR)
     Route: 048
     Dates: start: 20210723
  10. INDOMETHACIN [Suspect]
     Active Substance: INDOMETHACIN
     Indication: Cataract operation
     Dosage: 3 DRP, QD, (1 GOUTTE 3 FOIS PAR JOUR)
     Route: 031
     Dates: start: 20210722, end: 20221103
  11. DEXAMETHASONE SODIUM PHOSPHATE [Suspect]
     Active Substance: DEXAMETHASONE SODIUM PHOSPHATE
     Indication: Cataract operation
     Dosage: UNK
     Route: 031
     Dates: start: 20210722, end: 20210723

REACTIONS (1)
  - Acute generalised exanthematous pustulosis [Recovered/Resolved with Sequelae]

NARRATIVE: CASE EVENT DATE: 20210725
